FAERS Safety Report 6674319-8 (Version None)
Quarter: 2010Q2

REPORT INFORMATION
  Report Type: 
  Country: None (occurrence: None)
  Receive Date: 20100409
  Receipt Date: 20100329
  Transmission Date: 20101027
  Serious: Yes (Hospitalization)
  Sender: FDA-Public Use
  Company Number: RU-NOVOPROD-306634

PATIENT
  Age: 46 Year
  Sex: Male
  Weight: 83 kg

DRUGS (2)
  1. ACTRAPID HM [Suspect]
     Indication: TYPE 2 DIABETES MELLITUS
     Dosage: 8 IU, TID
     Dates: end: 20100204
  2. LANTUS [Suspect]
     Indication: TYPE 2 DIABETES MELLITUS
     Dosage: 12 IU, QD
     Dates: end: 20100204

REACTIONS (2)
  - DIABETES MELLITUS INADEQUATE CONTROL [None]
  - INFECTED SKIN ULCER [None]
